FAERS Safety Report 16779500 (Version 1)
Quarter: 2019Q3

REPORT INFORMATION
  Report Type: Spontaneous
  Country: CN (occurrence: CN)
  Receive Date: 20190906
  Receipt Date: 20190906
  Transmission Date: 20191005
  Serious: Yes (Other)
  Sender: FDA-Public Use
  Company Number: CN-ROCHE-2397456

PATIENT
  Age: 60 Year
  Sex: Female

DRUGS (1)
  1. MABTHERA [Suspect]
     Active Substance: RITUXIMAB
     Indication: NON-HODGKIN^S LYMPHOMA
     Route: 065
     Dates: start: 20160705

REACTIONS (4)
  - Lacunar infarction [Unknown]
  - Paranasal cyst [Unknown]
  - Night sweats [Unknown]
  - Marasmus [Unknown]

NARRATIVE: CASE EVENT DATE: 2019
